FAERS Safety Report 9063922 (Version 1)
Quarter: 2013Q1

REPORT INFORMATION
  Report Type: Report from Study
  Country: US (occurrence: US)
  Receive Date: 20130130
  Receipt Date: 20130130
  Transmission Date: 20140127
  Serious: No
  Sender: FDA-Public Use
  Company Number: US-ABBOTT-12P-163-0903004-00

PATIENT
  Age: 47 Year
  Sex: Female

DRUGS (5)
  1. HUMIRA 40 MG/0.8 ML PEN [Suspect]
     Indication: RHEUMATOID ARTHRITIS
     Dates: start: 20120110
  2. METHOTREXATE [Concomitant]
     Indication: ARTHRITIS
     Dosage: 10 PILLS EVERY TUESDAY
  3. METHOTREXATE [Concomitant]
     Dosage: 20MG WEEKLY
     Dates: start: 201205
  4. METFORMIN [Concomitant]
     Indication: GLUCOSE TOLERANCE IMPAIRED
     Dosage: 1 IN MORNING, 1 IN EVENING
     Dates: start: 201110
  5. FOLIC ACID [Concomitant]
     Indication: POLYMEDICATION

REACTIONS (2)
  - Injection site pain [Recovering/Resolving]
  - Arthralgia [Unknown]
